FAERS Safety Report 19175603 (Version 3)
Quarter: 2022Q1

REPORT INFORMATION
  Report Type: Spontaneous
  Country: US (occurrence: US)
  Receive Date: 20210423
  Receipt Date: 20220126
  Transmission Date: 20220423
  Serious: No
  Sender: FDA-Public Use
  Company Number: US-PFIZER INC-2021338913

PATIENT
  Age: 16 Year
  Sex: Male
  Weight: 58.1 kg

DRUGS (4)
  1. GENOTROPIN [Suspect]
     Active Substance: SOMATROPIN
     Indication: Prader-Willi syndrome
     Dosage: 0.8 MG, DAILY (0.8 MG INTO THE SKIN DAILY)
  2. TESTOSTERONE [Concomitant]
     Active Substance: TESTOSTERONE
     Indication: Prader-Willi syndrome
     Dosage: 2 MG, DAILY (IT IS A PATCH THAT GIVE 2MG PER 24 HOURS)
  3. TESTOSTERONE [Concomitant]
     Active Substance: TESTOSTERONE
     Indication: Hypogonadism
  4. TESTOSTERONE [Concomitant]
     Active Substance: TESTOSTERONE
     Indication: Growth hormone deficiency

REACTIONS (4)
  - Device dispensing error [Unknown]
  - Wrong technique in device usage process [Unknown]
  - Incorrect dose administered by device [Unknown]
  - Device breakage [Unknown]
